FAERS Safety Report 8503817-7 (Version None)
Quarter: 2012Q3

REPORT INFORMATION
  Report Type: 
  Country: None (occurrence: None)
  Receive Date: 20120711
  Receipt Date: 20120627
  Transmission Date: 20120928
  Serious: Yes (Other)
  Sender: FDA-Public Use
  Company Number: CA-JNJFOC-20120614145

PATIENT
  Sex: Female
  Weight: 77 kg

DRUGS (4)
  1. REMICADE [Suspect]
     Indication: CROHN'S DISEASE
     Dosage: EVERY 3-5 MONTHS
     Route: 042
  2. REMICADE [Suspect]
     Indication: RHEUMATOID ARTHRITIS
     Dosage: EVERY 3-5 MONTHS
     Route: 042
  3. CALCIUM [Concomitant]
     Route: 065
  4. MULTI-VITAMINS [Concomitant]
     Route: 065

REACTIONS (1)
  - PNEUMONIA VIRAL [None]
